FAERS Safety Report 4307018-8 (Version None)
Quarter: 2004Q1

REPORT INFORMATION
  Report Type: 
  Country: None (occurrence: None)
  Receive Date: 20040225
  Receipt Date: 20040210
  Transmission Date: 20041129
  Serious: Yes (Hospitalization)
  Sender: FDA-Public Use
  Company Number: US_0402100619

PATIENT
  Age: 8 Year
  Sex: Male

DRUGS (4)
  1. CECLOR [Suspect]
     Indication: TONSILLITIS
     Dosage: 750 MG/DAY
     Dates: start: 20031227, end: 20031229
  2. LOPERAMIDE HCL [Concomitant]
  3. DEXCHLORPHENIRAMINE MALEATE [Concomitant]
  4. MEQUITAZINE [Concomitant]

REACTIONS (4)
  - DEPRESSED LEVEL OF CONSCIOUSNESS [None]
  - DYSPNOEA [None]
  - ENCEPHALOPATHY [None]
  - VIRAL INFECTION [None]
